FAERS Safety Report 15250670 (Version 1)
Quarter: 2018Q4

REPORT INFORMATION
  Report Type: Spontaneous
  Country: CN (occurrence: CN)
  Receive Date: 20180807
  Receipt Date: 20180807
  Transmission Date: 20190204
  Serious: Yes (Other)
  Sender: FDA-Public Use
  Company Number: CN-SA-2018SA147175

PATIENT
  Age: 46 Year
  Sex: Male
  Weight: 71 kg

DRUGS (7)
  1. APROVEL [Suspect]
     Active Substance: IRBESARTAN
     Indication: HYPERTENSION
     Dosage: 150 MG, QD
     Route: 048
     Dates: start: 20180415, end: 20180424
  2. CORBIN [Concomitant]
     Indication: CHRONIC KIDNEY DISEASE
     Dosage: 1.5 G, TID
     Route: 048
     Dates: start: 20180415, end: 20180424
  3. ADALAT [Suspect]
     Active Substance: NIFEDIPINE
     Indication: HYPERTENSION
     Dosage: 30 MG, QD
     Route: 048
     Dates: start: 20180410, end: 20180424
  4. XIAO YAN LI DAN PIAN [Concomitant]
     Indication: ANTIINFLAMMATORY THERAPY
     Dosage: 1.56 G, TID
     Route: 048
     Dates: start: 20180414, end: 20180424
  5. BEIJING HYPOTENSIVE NO.0 [Concomitant]
     Indication: HYPERTENSION
     Dosage: 10 MG, QD
     Route: 048
     Dates: start: 20180415, end: 20180424
  6. LIPILFEN [Suspect]
     Active Substance: FENOFIBRATE
     Indication: HYPERLIPIDAEMIA
     Dosage: 250 MG, QD
     Route: 048
     Dates: start: 20180410, end: 20180424
  7. MEDICINAL CHARCOAL [Concomitant]
     Active Substance: ACTIVATED CHARCOAL
     Dosage: 0.9 G, TID
     Route: 048
     Dates: start: 20180414, end: 20180424

REACTIONS (1)
  - Drug eruption [Recovering/Resolving]

NARRATIVE: CASE EVENT DATE: 20180424
